FAERS Safety Report 7345953-7 (Version None)
Quarter: 2011Q1

REPORT INFORMATION
  Report Type: 
  Country: None (occurrence: None)
  Receive Date: 20110311
  Receipt Date: 20110303
  Transmission Date: 20110831
  Serious: No
  Sender: FDA-Public Use
  Company Number: US-BIOGENIDEC-2011BI008527

PATIENT
  Age: 44 Year
  Sex: Female

DRUGS (4)
  1. AVONEX [Concomitant]
     Indication: MULTIPLE SCLEROSIS
     Route: 030
     Dates: start: 20040526
  2. TYSABRI [Suspect]
     Indication: MULTIPLE SCLEROSIS
     Route: 042
     Dates: start: 20070117
  3. TYSABRI [Suspect]
     Route: 042
     Dates: start: 20050128
  4. AVONEX [Concomitant]
     Route: 030
     Dates: start: 20020517

REACTIONS (1)
  - PARAESTHESIA [None]
